FAERS Safety Report 22279604 (Version 1)
Quarter: 2023Q2

REPORT INFORMATION
  Report Type: Spontaneous
  Country: US (occurrence: US)
  Receive Date: 20230503
  Receipt Date: 20230503
  Transmission Date: 20230721
  Serious: No
  Sender: FDA-Public Use
  Company Number: US-ABBVIE-4743605

PATIENT
  Sex: Female
  Weight: 68.038 kg

DRUGS (6)
  1. DEPAKOTE [Suspect]
     Active Substance: DIVALPROEX SODIUM
     Indication: Seizure
     Dosage: TIME INTERVAL: 0.33333333 DAYS: UNRECALLED DOSE
     Route: 048
     Dates: start: 2006, end: 2008
  2. DEPAKOTE ER [Suspect]
     Active Substance: DIVALPROEX SODIUM
     Indication: Epilepsy
     Dosage: FOUR TABLETS OF 500 MG
     Route: 048
     Dates: start: 2023
  3. TOPAMAX [Concomitant]
     Active Substance: TOPIRAMATE
     Indication: Seizure
  4. BUSPIRONE [Concomitant]
     Active Substance: BUSPIRONE HYDROCHLORIDE
     Indication: Affective disorder
  5. PAXIL [Concomitant]
     Active Substance: PAROXETINE HYDROCHLORIDE
     Indication: Behaviour disorder
  6. LORAZEPAM [Concomitant]
     Active Substance: LORAZEPAM
     Indication: Seizure

REACTIONS (1)
  - Aggression [Recovered/Resolved]

NARRATIVE: CASE EVENT DATE: 20060101
